FAERS Safety Report 9082513 (Version 1)
Quarter: 2013Q1

REPORT INFORMATION
  Report Type: Spontaneous
  Country: US (occurrence: US)
  Receive Date: 20130130
  Receipt Date: 20130130
  Transmission Date: 20140127
  Serious: No
  Sender: FDA-Public Use
  Company Number: US-ABBOTT-12P-163-0955211-00

PATIENT
  Age: 61 Year
  Sex: Male
  Weight: 71.73 kg

DRUGS (8)
  1. HUMIRA 40 MG/0.8 ML PEN [Suspect]
     Indication: ARTHRITIS
     Dates: start: 20120627
  2. MELOXICAM [Concomitant]
     Indication: ARTHRITIS
  3. TRAMADOL [Concomitant]
     Indication: PAIN
  4. TYLENOL WITH CODEINE NO.3 [Concomitant]
     Indication: PAIN
  5. SIMVASTATIN [Concomitant]
     Indication: BLOOD CHOLESTEROL INCREASED
  6. PREDNISONE [Concomitant]
     Indication: ARTHRITIS
     Dates: end: 20120711
  7. FISH OIL [Concomitant]
     Indication: SUPPLEMENTATION THERAPY
  8. VITAMIN D [Concomitant]
     Indication: VITAMIN SUPPLEMENTATION

REACTIONS (3)
  - Drug administered at inappropriate site [Not Recovered/Not Resolved]
  - Wrong technique in drug usage process [Not Recovered/Not Resolved]
  - Injection site pain [Unknown]
